FAERS Safety Report 6327658-4 (Version None)
Quarter: 2009Q3

REPORT INFORMATION
  Report Type: 
  Country: None (occurrence: None)
  Receive Date: 20090825
  Receipt Date: 20090814
  Transmission Date: 20100115
  Serious: Yes (Death, Hospitalization)
  Sender: FDA-Public Use
  Company Number: FR-BAXTER-2009BH012926

PATIENT
  Age: 64 Year
  Sex: Female

DRUGS (24)
  1. HOLOXAN BAXTER [Suspect]
     Indication: DIFFUSE LARGE B-CELL LYMPHOMA
     Route: 042
     Dates: start: 20090119, end: 20090119
  2. HOLOXAN BAXTER [Suspect]
     Route: 042
     Dates: start: 20090216, end: 20090216
  3. HOLOXAN BAXTER [Suspect]
     Route: 042
     Dates: start: 20090318, end: 20090318
  4. MITOXANTRONE GENERIC [Suspect]
     Indication: DIFFUSE LARGE B-CELL LYMPHOMA
     Route: 042
     Dates: start: 20090119, end: 20090119
  5. MITOXANTRONE GENERIC [Suspect]
     Route: 042
     Dates: start: 20090216, end: 20090216
  6. MITOXANTRONE GENERIC [Suspect]
     Route: 042
     Dates: start: 20090318, end: 20090318
  7. ETOPOSIDE [Suspect]
     Indication: DIFFUSE LARGE B-CELL LYMPHOMA
     Route: 042
     Dates: start: 20090119, end: 20090119
  8. ETOPOSIDE [Suspect]
     Route: 042
     Dates: start: 20090216, end: 20090216
  9. ETOPOSIDE [Suspect]
     Route: 042
     Dates: start: 20090318, end: 20090318
  10. MABTHERA [Suspect]
     Indication: DIFFUSE LARGE B-CELL LYMPHOMA
     Route: 042
     Dates: start: 20090216, end: 20090216
  11. MABTHERA [Suspect]
     Route: 042
     Dates: start: 20090318, end: 20090318
  12. MABTHERA [Suspect]
     Route: 042
     Dates: start: 20090119, end: 20090119
  13. BICNU [Suspect]
     Indication: DIFFUSE LARGE B-CELL LYMPHOMA
     Route: 042
     Dates: start: 20090421, end: 20090421
  14. ARACYTINE [Suspect]
     Indication: DIFFUSE LARGE B-CELL LYMPHOMA
     Route: 042
     Dates: start: 20090422, end: 20090425
  15. VEPESID [Suspect]
     Indication: DIFFUSE LARGE B-CELL LYMPHOMA
     Route: 042
     Dates: start: 20090422, end: 20090425
  16. ALKERAN [Suspect]
     Indication: DIFFUSE LARGE B-CELL LYMPHOMA
     Route: 042
     Dates: start: 20090426, end: 20090426
  17. VALACYCLOVIR HCL [Concomitant]
     Indication: DRUG USE FOR UNKNOWN INDICATION
     Route: 065
     Dates: start: 20090526
  18. XANAX [Concomitant]
     Indication: DRUG USE FOR UNKNOWN INDICATION
     Route: 065
  19. PRIMPERAN [Concomitant]
     Indication: DRUG USE FOR UNKNOWN INDICATION
     Route: 065
  20. BICARBONATE MOUTHWASH [Concomitant]
     Indication: DRUG USE FOR UNKNOWN INDICATION
     Route: 065
  21. DIFFU K [Concomitant]
     Indication: DRUG USE FOR UNKNOWN INDICATION
     Route: 065
  22. FOLIC ACID [Concomitant]
     Indication: DRUG USE FOR UNKNOWN INDICATION
     Route: 065
  23. EPOETIN BETA [Concomitant]
     Indication: DRUG USE FOR UNKNOWN INDICATION
     Route: 065
     Dates: start: 20090609
  24. ZOLOFT [Concomitant]
     Indication: DRUG USE FOR UNKNOWN INDICATION
     Route: 065
     Dates: start: 20090501

REACTIONS (1)
  - PANCYTOPENIA [None]
